FAERS Safety Report 9207429 (Version 2)
Quarter: 2013Q2

REPORT INFORMATION
  Report Type: Spontaneous
  Country: ES (occurrence: ES)
  Receive Date: 20130403
  Receipt Date: 20130611
  Transmission Date: 20140414
  Serious: Yes (Hospitalization)
  Sender: FDA-Public Use
  Company Number: ES-ELI_LILLY_AND_COMPANY-ES201304000455

PATIENT
  Age: 80 Year
  Sex: Male
  Weight: 70 kg

DRUGS (2)
  1. FORSTEO [Suspect]
     Indication: OSTEOPOROSIS
     Dosage: 20 UG, QD
     Route: 058
     Dates: start: 20130314
  2. SINTROM [Concomitant]
     Dosage: UNK
     Route: 048

REACTIONS (3)
  - Postoperative wound infection [Unknown]
  - Hepatitis [Not Recovered/Not Resolved]
  - Hypotension [Unknown]
